FAERS Safety Report 4688065-3 (Version None)
Quarter: 2005Q2

REPORT INFORMATION
  Report Type: 
  Country: None (occurrence: None)
  Receive Date: 20050610
  Receipt Date: 20050601
  Transmission Date: 20051028
  Serious: Yes (Hospitalization)
  Sender: FDA-Public Use
  Company Number: CA-ROCHE-406424

PATIENT
  Age: 37 Year
  Sex: Female

DRUGS (3)
  1. ACCUTANE [Suspect]
     Indication: ACNE
     Route: 048
     Dates: start: 20050216, end: 20050316
  2. ACCUTANE [Suspect]
     Route: 048
     Dates: start: 20050316, end: 20050529
  3. ELAVIL [Concomitant]
     Indication: DEPRESSION
     Dosage: OVERDOSE.
     Route: 048
     Dates: start: 20050529

REACTIONS (3)
  - OVERDOSE [None]
  - RELATIONSHIP BREAKDOWN [None]
  - SUICIDE ATTEMPT [None]
